FAERS Safety Report 18019815 (Version 1)
Quarter: 2020Q3

REPORT INFORMATION
  Report Type: Spontaneous
  Country: ID (occurrence: ID)
  Receive Date: 20200714
  Receipt Date: 20200714
  Transmission Date: 20201103
  Serious: Yes (Other)
  Sender: FDA-Public Use
  Company Number: ID-BAYER-2020-134679

PATIENT
  Age: 45 Year
  Sex: Female

DRUGS (1)
  1. YASMIN [Suspect]
     Active Substance: DROSPIRENONE\ETHINYL ESTRADIOL
     Indication: ORAL CONTRACEPTION
     Route: 048

REACTIONS (5)
  - Alanine aminotransferase increased [None]
  - Aspartate aminotransferase increased [None]
  - Hepatomegaly [None]
  - Hypomenorrhoea [None]
  - Nephrolithiasis [None]

NARRATIVE: CASE EVENT DATE: 2020
